FAERS Safety Report 9694969 (Version 3)
Quarter: 2014Q1

REPORT INFORMATION
  Report Type: Spontaneous
  Country: US (occurrence: US)
  Receive Date: 20131119
  Receipt Date: 20140109
  Transmission Date: 20141002
  Serious: Yes (Life-Threatening, Hospitalization)
  Sender: FDA-Public Use
  Company Number: US-JNJFOC-20131106184

PATIENT
  Age: 92 Year
  Sex: Female
  Weight: 52.16 kg

DRUGS (7)
  1. XARELTO [Suspect]
     Indication: CEREBROVASCULAR ACCIDENT PROPHYLAXIS
     Route: 048
     Dates: start: 20120205, end: 20131105
  2. XARELTO [Suspect]
     Indication: ATRIAL FIBRILLATION
     Route: 048
     Dates: start: 20120205, end: 20131105
  3. ATENOLOL [Concomitant]
     Indication: HYPERTENSION
     Route: 065
  4. ATORVASTATIN [Concomitant]
     Indication: HYPERLIPIDAEMIA
     Route: 065
  5. DONEPEZIL [Concomitant]
     Indication: DEMENTIA
     Route: 065
  6. FUROSEMIDE [Concomitant]
     Indication: OEDEMA
     Route: 065
  7. HYDRALAZINE [Concomitant]
     Indication: HYPERTENSION
     Route: 065

REACTIONS (3)
  - Cerebrovascular accident [Unknown]
  - Cerebral artery embolism [Recovering/Resolving]
  - Cerebral infarction [Recovering/Resolving]
